FAERS Safety Report 9876996 (Version 2)
Quarter: 2014Q1

REPORT INFORMATION
  Report Type: Spontaneous
  Country: IT (occurrence: None)
  Receive Date: 20140204
  Receipt Date: 20140226
  Transmission Date: 20141002
  Serious: Yes (Other)
  Sender: FDA-Public Use
  Company Number: AUR-APL-2014-01111

PATIENT
  Age: 35 Year
  Sex: Female

DRUGS (2)
  1. PAROXETINE [Suspect]
     Indication: PRODUCT USED FOR UNKNOWN INDICATION
     Dosage: 100 MG, TOTAL, ORAL
     Route: 048
     Dates: start: 20131112, end: 20131112
  2. XANAX (ALPRAZOLAM) [Suspect]
     Indication: PRODUCT USED FOR UNKNOWN INDICATION
     Dosage: 20 ML, TOTAL, ORAL
     Route: 048
     Dates: start: 20131112, end: 20131112

REACTIONS (3)
  - Drug abuse [None]
  - Sopor [None]
  - Somnolence [None]
